FAERS Safety Report 25799162 (Version 1)
Quarter: 2025Q3

REPORT INFORMATION
  Report Type: Report from Study
  Country: CA (occurrence: CA)
  Receive Date: 20250913
  Receipt Date: 20250913
  Transmission Date: 20251021
  Serious: Yes (Other)
  Sender: CELLTRION
  Company Number: CA-CELLTRION INC.-2025CA032152

PATIENT

DRUGS (1)
  1. INFLIXIMAB-DYYB [Suspect]
     Active Substance: INFLIXIMAB-DYYB
     Indication: Crohn^s disease
     Dosage: MAINTENANCE - 800 MG, EVERY 4 WEEKS
     Route: 042
     Dates: start: 20250814

REACTIONS (4)
  - Respiratory symptom [Unknown]
  - Pneumonia fungal [Unknown]
  - Intentional dose omission [Unknown]
  - Intentional product use issue [Unknown]
